FAERS Safety Report 20893035 (Version 2)
Quarter: 2022Q3

REPORT INFORMATION
  Report Type: Spontaneous
  Country: US (occurrence: US)
  Receive Date: 20220531
  Receipt Date: 20220922
  Transmission Date: 20221027
  Serious: No
  Sender: FDA-Public Use
  Company Number: US-MLMSERVICE-20220517-3565273-1

PATIENT
  Age: 82 Year
  Sex: Female

DRUGS (9)
  1. ATORVASTATIN [Interacting]
     Active Substance: ATORVASTATIN
     Indication: Hyperlipidaemia
     Dosage: 80 MG, DAILY
     Route: 048
     Dates: start: 2011, end: 2021
  2. ATORVASTATIN [Interacting]
     Active Substance: ATORVASTATIN
     Dosage: 20 MG, DAILY
     Route: 065
     Dates: start: 2021, end: 20210908
  3. GEMFIBROZIL [Interacting]
     Active Substance: GEMFIBROZIL
     Indication: Hyperlipidaemia
     Dosage: 600 MILLIGRAM, BID
     Route: 065
     Dates: start: 2015, end: 2016
  4. BEMPEDOIC ACID [Interacting]
     Active Substance: BEMPEDOIC ACID
     Indication: Hyperlipidaemia
     Dosage: 180 MG, DAILY
     Route: 048
     Dates: start: 202107
  5. BEMPEDOIC ACID [Interacting]
     Active Substance: BEMPEDOIC ACID
     Indication: Myocardial infarction
  6. BEMPEDOIC ACID [Interacting]
     Active Substance: BEMPEDOIC ACID
     Indication: Myocardial ischaemia
  7. EZETIMIBE [Concomitant]
     Active Substance: EZETIMIBE
     Indication: Hyperlipidaemia
     Dosage: 10 MILLIGRAM, QD
     Route: 065
     Dates: start: 202009
  8. EZETIMIBE [Concomitant]
     Active Substance: EZETIMIBE
     Indication: Myocardial infarction
  9. EZETIMIBE [Concomitant]
     Active Substance: EZETIMIBE
     Indication: Myocardial ischaemia

REACTIONS (6)
  - Drug interaction [Recovered/Resolved]
  - Drug level increased [Recovered/Resolved]
  - Drug dose titration not performed [Unknown]
  - Muscle spasms [Recovered/Resolved]
  - Blood creatine phosphokinase increased [Recovered/Resolved]
  - Myalgia [Recovered/Resolved]

NARRATIVE: CASE EVENT DATE: 20150101
